FAERS Safety Report 5583098-7 (Version None)
Quarter: 2007Q4

REPORT INFORMATION
  Report Type: 
  Country: None (occurrence: None)
  Receive Date: 20071231
  Receipt Date: 20071219
  Transmission Date: 20080405
  Serious: Yes (Death, Life-Threatening, Hospitalization, Other)
  Sender: FDA-Public Use
  Company Number: ENTC2007-0376

PATIENT
  Age: 76 Year
  Sex: Male

DRUGS (6)
  1. STALEVO 100 [Suspect]
     Indication: PARKINSON'S DISEASE
     Dosage: 50 MG, QD ORAL; 50 MG, BID ORAL; 100 MG, Q8H ORAL; 150 MG, BID ORAL
     Route: 048
     Dates: start: 20050101
  2. STALEVO 100 [Suspect]
     Indication: PARKINSON'S DISEASE
     Dosage: 50 MG, QD ORAL; 50 MG, BID ORAL; 100 MG, Q8H ORAL; 150 MG, BID ORAL
     Route: 048
     Dates: start: 20071101
  3. STALEVO 100 [Suspect]
     Indication: PARKINSON'S DISEASE
     Dosage: 50 MG, QD ORAL; 50 MG, BID ORAL; 100 MG, Q8H ORAL; 150 MG, BID ORAL
     Route: 048
     Dates: start: 20071206
  4. INSULIN HUMAN [Concomitant]
  5. OMEPRAZOLE [Concomitant]
  6. PROLOPA [Concomitant]

REACTIONS (8)
  - ACTIVITIES OF DAILY LIVING IMPAIRED [None]
  - CONVULSION [None]
  - FEELING ABNORMAL [None]
  - INFARCTION [None]
  - ORAL INTAKE REDUCED [None]
  - PULMONARY EMBOLISM [None]
  - SKIN DISCOLOURATION [None]
  - URINARY TRACT INFECTION [None]
